FAERS Safety Report 8662105 (Version 2)
Quarter: 2014Q1

REPORT INFORMATION
  Report Type: Spontaneous
  Country: US (occurrence: US)
  Receive Date: 20120712
  Receipt Date: 20140107
  Transmission Date: 20141002
  Serious: Yes (Hospitalization, Other)
  Sender: FDA-Public Use
  Company Number: US-ROCHE-1056705

PATIENT
  Sex: Female
  Weight: 31.78 kg

DRUGS (2)
  1. ACCUTANE [Suspect]
     Indication: SKIN DISORDER
     Route: 065
     Dates: start: 198701, end: 198712
  2. ALBUTEROL [Concomitant]

REACTIONS (8)
  - Crohn^s disease [Unknown]
  - Inflammatory bowel disease [Unknown]
  - Depression [Unknown]
  - Colitis ulcerative [Unknown]
  - Bipolar disorder [Unknown]
  - Mental disorder [Unknown]
  - Irritable bowel syndrome [Unknown]
  - Reproductive tract disorder [Unknown]
